FAERS Safety Report 23165644 (Version 1)
Quarter: 2023Q4

REPORT INFORMATION
  Report Type: Spontaneous
  Country: US (occurrence: US)
  Receive Date: 20231109
  Receipt Date: 20231109
  Transmission Date: 20240110
  Serious: No
  Sender: FDA-Public Use
  Company Number: US-BEH-2023165122

PATIENT
  Age: 52 Year
  Sex: Male
  Weight: 165 kg

DRUGS (24)
  1. PRIVIGEN [Suspect]
     Active Substance: HUMAN IMMUNOGLOBULIN G
     Route: 065
  2. DUPIXENT [Suspect]
     Active Substance: DUPILUMAB
     Indication: Asthma
     Dosage: 300 MILLIGRAM, QOW
     Route: 058
  3. UROCIT-K [Concomitant]
     Active Substance: POTASSIUM CITRATE
  4. CIALIS [Concomitant]
     Active Substance: TADALAFIL
  5. SINGULAIR [Concomitant]
     Active Substance: MONTELUKAST SODIUM
  6. DULERA [Concomitant]
     Active Substance: FORMOTEROL FUMARATE DIHYDRATE\MOMETASONE FUROATE
  7. BECONASE AQ [Concomitant]
     Active Substance: BECLOMETHASONE DIPROPIONATE MONOHYDRATE
  8. CLOBEX [CLOXACILLIN SODIUM] [Concomitant]
  9. ZYRTEC [Concomitant]
     Active Substance: CETIRIZINE HYDROCHLORIDE
  10. MOBIC [Concomitant]
     Active Substance: MELOXICAM
  11. MINOCYCLINE [Concomitant]
     Active Substance: MINOCYCLINE HYDROCHLORIDE
  12. ALLOPURINOL [Concomitant]
     Active Substance: ALLOPURINOL
  13. XOPENEX [Concomitant]
     Active Substance: LEVALBUTEROL HYDROCHLORIDE
  14. XYZAL [Concomitant]
     Active Substance: LEVOCETIRIZINE DIHYDROCHLORIDE
  15. FLUOCINONIDE [Concomitant]
     Active Substance: FLUOCINONIDE
  16. PROAIR HFA [Concomitant]
     Active Substance: ALBUTEROL SULFATE
  17. BROVANA [Concomitant]
     Active Substance: ARFORMOTEROL TARTRATE
  18. PREVACID [Concomitant]
     Active Substance: LANSOPRAZOLE
  19. ZETIA [Concomitant]
     Active Substance: EZETIMIBE
  20. MUPIROCIN [Concomitant]
     Active Substance: MUPIROCIN
  21. TOPROL XL [Concomitant]
     Active Substance: METOPROLOL SUCCINATE
  22. CHLORTHALIDONE [Concomitant]
     Active Substance: CHLORTHALIDONE
  23. CALCIUM CARBONATE [Concomitant]
     Active Substance: CALCIUM CARBONATE
  24. ACETAMINOPHEN\HYDROCODONE [Concomitant]
     Active Substance: ACETAMINOPHEN\HYDROCODONE

REACTIONS (5)
  - Anxiety [Unknown]
  - Hypotension [Recovered/Resolved]
  - Heart rate increased [Unknown]
  - Neck surgery [Unknown]
  - Dizziness [Unknown]

NARRATIVE: CASE EVENT DATE: 20230801
